FAERS Safety Report 5847660-6 (Version None)
Quarter: 2008Q3

REPORT INFORMATION
  Report Type: 
  Country: None (occurrence: None)
  Receive Date: 20080815
  Receipt Date: 20080815
  Transmission Date: 20090109
  Serious: Yes (Other)
  Sender: FDA-Public Use
  Company Number: None

PATIENT
  Age: 77 Year
  Sex: Female
  Weight: 49.8957 kg

DRUGS (1)
  1. LEXAPRO [Suspect]
     Dosage: 1 TABLET PER DAY
     Dates: start: 20060526, end: 20060822

REACTIONS (2)
  - LIBIDO INCREASED [None]
  - MEMORY IMPAIRMENT [None]
